FAERS Safety Report 8845543 (Version 1)
Quarter: 2012Q4

REPORT INFORMATION
  Report Type: 
  Country: US (occurrence: US)
  Receive Date: 20121017
  Receipt Date: 20121017
  Transmission Date: 20130627
  Serious: No
  Sender: FDA-Public Use
  Company Number: US-B.I. PHARMACEUTICALS,INC./RIDGEFIELD-2012-BP-24737BP

PATIENT
  Sex: Female
  Weight: 59 kg

DRUGS (5)
  1. SPIRIVA [Suspect]
     Indication: CHRONIC OBSTRUCTIVE PULMONARY DISEASE
     Dosage: 18 mcg
     Route: 055
     Dates: start: 201206
  2. PRILOSEC [Concomitant]
     Indication: GASTRIC ULCER
     Dosage: 40 mg
     Route: 048
     Dates: start: 1980
  3. METOPROLOL [Concomitant]
     Indication: CARDIAC DISORDER
     Dosage: 50 mg
     Route: 048
     Dates: start: 201004
  4. LISINOPRIL/HYDROCHLOROTHIAZIDE [Concomitant]
     Indication: HYPERTENSION
     Route: 048
     Dates: start: 201201
  5. MEDICATION NOT FURTHER SPECIFIED [Concomitant]
     Indication: DYSPNOEA
     Route: 055
     Dates: start: 201204

REACTIONS (2)
  - Cataract [Not Recovered/Not Resolved]
  - Product quality issue [Recovered/Resolved]
